FAERS Safety Report 11029652 (Version 1)
Quarter: 2015Q2

REPORT INFORMATION
  Report Type: Spontaneous
  Country: US (occurrence: None)
  Receive Date: 20150414
  Receipt Date: 20150414
  Transmission Date: 20150821
  Serious: Yes (Death, Hospitalization)
  Sender: FDA-Public Use
  Company Number: None

PATIENT
  Age: 2 Year
  Sex: Male
  Weight: 16.4 kg

DRUGS (2)
  1. CYTARABINE. [Suspect]
     Active Substance: CYTARABINE
     Dosage: 15360 MG
     Dates: end: 20080711
  2. PEG-L-ASPARAGINASE (K-H) [Suspect]
     Active Substance: PEGASPARGASE
     Dosage: 1600 UNIT
     Dates: end: 20080711

REACTIONS (5)
  - Neutropenia [None]
  - Cardiac arrest [None]
  - Respiratory distress [None]
  - Bradycardia [None]
  - Pyrexia [None]

NARRATIVE: CASE EVENT DATE: 20080721
